FAERS Safety Report 4589106-4 (Version None)
Quarter: 2005Q1

REPORT INFORMATION
  Report Type: 
  Country: None (occurrence: None)
  Receive Date: 20050125
  Receipt Date: 20040923
  Transmission Date: 20050727
  Serious: No
  Sender: FDA-Public Use
  Company Number: USA040979152

PATIENT
  Age: 74 Year
  Sex: Female
  Weight: 52 kg

DRUGS (6)
  1. FORTEO [Suspect]
     Indication: OSTEOPOROSIS
     Dosage: 20 UG/1 DAY
     Dates: start: 20040101
  2. EVISTA [Suspect]
     Indication: OSTEOPOROSIS
     Dosage: 60 MG/1 DAY
     Dates: start: 20010101, end: 20040101
  3. CALCIUM GLUCONATE [Concomitant]
  4. HERBAL EXTRACT NOS [Concomitant]
  5. FIORICET [Concomitant]
  6. CALCITONIN [Concomitant]

REACTIONS (11)
  - ACCIDENTAL OVERDOSE [None]
  - BENIGN NEOPLASM [None]
  - BODY HEIGHT DECREASED [None]
  - BONE DENSITY DECREASED [None]
  - CUTIS LAXA [None]
  - DRUG INEFFECTIVE [None]
  - INJECTION SITE ERYTHEMA [None]
  - INJECTION SITE HAEMORRHAGE [None]
  - NAUSEA [None]
  - SCRATCH [None]
  - WEIGHT DECREASED [None]
